FAERS Safety Report 5250942-2 (Version None)
Quarter: 2007Q1

REPORT INFORMATION
  Report Type: 
  Country: None (occurrence: None)
  Receive Date: 20070228
  Receipt Date: 20060824
  Transmission Date: 20070707
  Serious: No
  Sender: FDA-Public Use
  Company Number: US-GLAXOSMITHKLINE-A0614164A

PATIENT
  Age: 58 Year
  Sex: Male
  Weight: 75 kg

DRUGS (5)
  1. LAMICTAL [Suspect]
     Indication: BIPOLAR DISORDER
     Dosage: 100MG PER DAY
     Route: 048
  2. ALPRAZOLAM [Concomitant]
  3. TRIAZOLAM [Concomitant]
  4. TOPAMAX [Concomitant]
  5. NEFAZODONE HCL [Concomitant]

REACTIONS (4)
  - GLOSSITIS [None]
  - GLOSSODYNIA [None]
  - STOMATITIS [None]
  - TONGUE ERUPTION [None]
